FAERS Safety Report 11326498 (Version 1)
Quarter: 2015Q3

REPORT INFORMATION
  Report Type: Spontaneous
  Country: IT (occurrence: None)
  Receive Date: 20150729
  Receipt Date: 20150729
  Transmission Date: 20151125
  Serious: Yes (Other)
  Sender: FDA-Public Use
  Company Number: 2015RN000044

PATIENT
  Sex: Female

DRUGS (1)
  1. ACYCLOVIR (ACYCLOVIR) TABLET [Suspect]
     Active Substance: ACYCLOVIR
     Indication: OPHTHALMIC HERPES SIMPLEX
     Route: 048
     Dates: start: 20150407

REACTIONS (3)
  - Abdominal pain [None]
  - Abdominal distension [None]
  - Dermatitis bullous [None]

NARRATIVE: CASE EVENT DATE: 20150414
